FAERS Safety Report 8942022 (Version 1)
Quarter: 2012Q4

REPORT INFORMATION
  Report Type: 
  Country: CH (occurrence: CH)
  Receive Date: 20121130
  Receipt Date: 20121130
  Transmission Date: 20130627
  Serious: Yes (Hospitalization)
  Sender: FDA-Public Use
  Company Number: CH-ASTRAZENECA-2012SE89176

PATIENT
  Age: 32 Year
  Sex: Female

DRUGS (6)
  1. SEROQUEL [Suspect]
     Dosage: 12.5-12.5-25mg, 50mg/day
     Route: 048
  2. PAROXETIN [Suspect]
     Route: 048
     Dates: end: 20121019
  3. TRITTICO [Suspect]
     Route: 048
     Dates: end: 20121019
  4. MST [Concomitant]
     Route: 048
  5. NEXIUM [Concomitant]
     Route: 048
  6. TRANXILIUM [Concomitant]
     Route: 048

REACTIONS (5)
  - Serotonin syndrome [Recovered/Resolved]
  - Hepatic enzyme increased [Unknown]
  - Nystagmus [Recovered/Resolved]
  - Sensory disturbance [Recovered/Resolved]
  - Muscular weakness [Recovered/Resolved]
